FAERS Safety Report 9604357 (Version 1)
Quarter: 2013Q4

REPORT INFORMATION
  Report Type: Spontaneous
  Country: JP (occurrence: JP)
  Receive Date: 20131008
  Receipt Date: 20131008
  Transmission Date: 20140711
  Serious: Yes (Other)
  Sender: FDA-Public Use
  Company Number: PHHY2013JP112374

PATIENT
  Sex: Female

DRUGS (2)
  1. VOLTAREN [Suspect]
     Indication: OSTEOARTHRITIS
     Dosage: UNK UKN, UNK
     Route: 054
  2. ANALGESICS [Concomitant]
     Dosage: UNK UKN, UNK

REACTIONS (3)
  - Fall [Unknown]
  - Swelling [Unknown]
  - Flank pain [Unknown]
